FAERS Safety Report 4988799-7 (Version None)
Quarter: 2006Q2

REPORT INFORMATION
  Report Type: 
  Country: None (occurrence: None)
  Receive Date: 20060502
  Receipt Date: 20060201
  Transmission Date: 20061013
  Serious: Yes (Hospitalization)
  Sender: FDA-Public Use
  Company Number: US-MERCK-0602USA00562

PATIENT
  Age: 74 Year
  Sex: Male
  Weight: 95 kg

DRUGS (11)
  1. VIOXX [Suspect]
     Indication: OSTEOARTHRITIS
     Route: 048
     Dates: start: 20010201, end: 20040321
  2. VIOXX [Suspect]
     Indication: SPINAL COLUMN STENOSIS
     Route: 048
     Dates: start: 20010201, end: 20040321
  3. ATENOLOL [Concomitant]
     Route: 065
  4. NORVASC [Concomitant]
     Indication: HYPERTENSION
     Route: 065
  5. CARTIA XT [Concomitant]
     Route: 065
  6. ZOCOR [Concomitant]
     Route: 065
  7. ASPIRIN [Concomitant]
     Route: 065
     Dates: start: 20010101
  8. CELEBREX [Concomitant]
     Route: 065
     Dates: start: 20020301, end: 20020601
  9. BEXTRA [Concomitant]
     Route: 065
     Dates: start: 20030401
  10. CARDIZEM [Concomitant]
     Indication: HYPERTENSION
     Route: 065
  11. TENORMIN [Concomitant]
     Indication: HYPERTENSION
     Route: 065

REACTIONS (10)
  - ASTHENIA [None]
  - BACK PAIN [None]
  - CORONARY ARTERY DISEASE [None]
  - FAECES DISCOLOURED [None]
  - HYPERLIPIDAEMIA [None]
  - HYPERTENSION [None]
  - MYOCARDIAL INFARCTION [None]
  - ROTATOR CUFF SYNDROME [None]
  - SPINAL DISORDER [None]
  - UPPER GASTROINTESTINAL HAEMORRHAGE [None]
